FAERS Safety Report 15043437 (Version 2)
Quarter: 2018Q3

REPORT INFORMATION
  Report Type: Spontaneous
  Country: US (occurrence: US)
  Receive Date: 20180621
  Receipt Date: 20180723
  Transmission Date: 20181010
  Serious: No
  Sender: FDA-Public Use
  Company Number: US-SA-2018SA152632

PATIENT
  Age: 70 Year
  Sex: Female

DRUGS (1)
  1. TOUJEO [Suspect]
     Active Substance: INSULIN GLARGINE
     Indication: TYPE 2 DIABETES MELLITUS
     Dosage: 80 UNITS, QD
     Dates: start: 201802

REACTIONS (4)
  - Incorrect dose administered by device [Unknown]
  - Abdominal discomfort [Unknown]
  - Diarrhoea [Unknown]
  - Blood glucose increased [Unknown]
